FAERS Safety Report 11683189 (Version 1)
Quarter: 2015Q4

REPORT INFORMATION
  Report Type: Spontaneous
  Country: US (occurrence: US)
  Receive Date: 20151029
  Receipt Date: 20151029
  Transmission Date: 20160304
  Serious: No
  Sender: FDA-Public Use
  Company Number: US-DSJP-DSU-2014-127608

PATIENT
  Age: 62 Year
  Sex: Female
  Weight: 63.49 kg

DRUGS (3)
  1. AZOR [Suspect]
     Active Substance: AMLODIPINE BESYLATE\OLMESARTAN MEDOXOMIL
     Indication: HYPERTENSION
     Dosage: 20/5 MG, QD
     Route: 048
     Dates: start: 2012
  2. CHANTIX [Concomitant]
     Active Substance: VARENICLINE TARTRATE
     Indication: TOBACCO USER
     Dosage: UNK
  3. LEVOSTATIN [Suspect]
     Active Substance: LOVASTATIN
     Indication: HYPERLIPIDAEMIA
     Dosage: UNK
     Route: 048
     Dates: start: 201410

REACTIONS (7)
  - Blood pressure increased [Not Recovered/Not Resolved]
  - Drug administration error [Not Recovered/Not Resolved]
  - Headache [Not Recovered/Not Resolved]
  - Disease recurrence [None]
  - Inappropriate schedule of drug administration [None]
  - Muscle spasms [Not Recovered/Not Resolved]
  - Stress [None]

NARRATIVE: CASE EVENT DATE: 201410
